FAERS Safety Report 4971945-9 (Version None)
Quarter: 2006Q2

REPORT INFORMATION
  Report Type: 
  Country: None (occurrence: None)
  Receive Date: 20060413
  Receipt Date: 20050518
  Transmission Date: 20061013
  Serious: Yes (Death, Hospitalization)
  Sender: FDA-Public Use
  Company Number: US-MERCK-0505USA02280

PATIENT
  Age: 83 Year
  Sex: Female
  Weight: 80 kg

DRUGS (4)
  1. VIOXX [Suspect]
     Indication: INFLAMMATION
     Route: 048
     Dates: start: 20010201, end: 20010301
  2. VIOXX [Suspect]
     Route: 048
     Dates: start: 20010111, end: 20010201
  3. VIOXX [Suspect]
     Indication: PAIN
     Route: 048
     Dates: start: 20010201, end: 20010301
  4. VIOXX [Suspect]
     Route: 048
     Dates: start: 20010111, end: 20010201

REACTIONS (14)
  - ARTHRALGIA [None]
  - BLOOD PRESSURE DECREASED [None]
  - CARDIAC FAILURE CONGESTIVE [None]
  - CHEST PAIN [None]
  - CORONARY ARTERY DISEASE [None]
  - DEMENTIA [None]
  - DIZZINESS [None]
  - DYSPEPSIA [None]
  - GASTROENTERITIS [None]
  - HAEMOGLOBIN DECREASED [None]
  - MYOCARDIAL INFARCTION [None]
  - PNEUMOTHORAX [None]
  - TRANSIENT ISCHAEMIC ATTACK [None]
  - VASCULAR PSEUDOANEURYSM [None]
